FAERS Safety Report 6483938-3 (Version None)
Quarter: 2009Q4

REPORT INFORMATION
  Report Type: 
  Country: None (occurrence: None)
  Receive Date: 20091209
  Receipt Date: 20091203
  Transmission Date: 20100525
  Serious: Yes (Disabling, Other)
  Sender: FDA-Public Use
  Company Number: US-MERCK-0810USA00727

PATIENT
  Age: 62 Year
  Sex: Female

DRUGS (7)
  1. FOSAMAX [Suspect]
     Indication: BONE DENSITY DECREASED
     Route: 048
     Dates: start: 19980716, end: 20010301
  2. FOSAMAX [Suspect]
     Route: 048
     Dates: start: 20010301, end: 20060101
  3. FOSAMAX [Suspect]
     Indication: OSTEOPOROSIS
     Route: 048
     Dates: start: 19980716, end: 20010301
  4. FOSAMAX [Suspect]
     Route: 048
     Dates: start: 20010301, end: 20060101
  5. DILANTIN [Concomitant]
     Indication: CONVULSION
     Route: 065
     Dates: start: 19720101
  6. HORMONES (UNSPECIFIED) [Concomitant]
     Indication: HORMONE THERAPY
     Route: 065
     Dates: start: 19950101
  7. [THERAPY UNSPECIFIED] [Concomitant]
     Indication: BLOOD CHOLESTEROL INCREASED
     Route: 065
     Dates: start: 19980101

REACTIONS (28)
  - ACROCHORDON [None]
  - BONE DENSITY DECREASED [None]
  - CHLOASMA [None]
  - COLONIC POLYP [None]
  - DEPRESSION [None]
  - DIVERTICULUM [None]
  - DYSFUNCTIONAL UTERINE BLEEDING [None]
  - DYSPHONIA [None]
  - FIBROCYSTIC BREAST DISEASE [None]
  - GOUT [None]
  - HYPERLIPIDAEMIA [None]
  - JAW DISORDER [None]
  - JOINT SWELLING [None]
  - LABYRINTHITIS [None]
  - LIBIDO DECREASED [None]
  - MENOPAUSAL SYMPTOMS [None]
  - NASOPHARYNGITIS [None]
  - ORAL INFECTION [None]
  - OSTEONECROSIS [None]
  - OSTEOPENIA [None]
  - OTITIS MEDIA [None]
  - SINUSITIS [None]
  - SKIN CANCER [None]
  - SKIN LESION [None]
  - TOOTH ABSCESS [None]
  - TOOTH DISORDER [None]
  - TRISMUS [None]
  - VAGINITIS BACTERIAL [None]
